FAERS Safety Report 25251469 (Version 1)
Quarter: 2025Q2

REPORT INFORMATION
  Report Type: Spontaneous
  Country: US (occurrence: US)
  Receive Date: 20250429
  Receipt Date: 20250429
  Transmission Date: 20250716
  Serious: Yes (Death, Hospitalization, Other)
  Sender: MERCK SHARP & DOHME LLC
  Company Number: US-009507513-2278884

PATIENT
  Age: 76 Year
  Sex: Female

DRUGS (1)
  1. PEMBROLIZUMAB [Suspect]
     Active Substance: PEMBROLIZUMAB
     Indication: Non-small cell lung cancer metastatic
     Route: 065

REACTIONS (4)
  - Cardiac arrest [Fatal]
  - Immune-mediated hepatitis [Unknown]
  - Myocarditis-myositis-myasthenia gravis overlap syndrome [Unknown]
  - Ventricular tachycardia [Unknown]
